FAERS Safety Report 7728792-4 (Version None)
Quarter: 2011Q3

REPORT INFORMATION
  Report Type: 
  Country: None (occurrence: None)
  Receive Date: 20110817
  Receipt Date: 20101124
  Transmission Date: 20111222
  Serious: Yes (Hospitalization, Other)
  Sender: FDA-Public Use
  Company Number: 20109123

PATIENT
  Sex: Female

DRUGS (2)
  1. LIORESAL [Suspect]
     Indication: MUSCLE SPASTICITY
     Dosage: 4 MCG, DAILY, INTRATHECAL - SEE B5
     Route: 037
  2. DILAUDID [Concomitant]

REACTIONS (3)
  - PYREXIA [None]
  - INFECTION [None]
  - HOSPITALISATION [None]
